FAERS Safety Report 8685753 (Version 2)
Quarter: 2014Q3

REPORT INFORMATION
  Report Type: Spontaneous
  Country: US (occurrence: US)
  Receive Date: 20120726
  Receipt Date: 20140804
  Transmission Date: 20150326
  Serious: Yes (Hospitalization)
  Sender: FDA-Public Use
  Company Number: US-GLAXOSMITHKLINE-B0697402A

PATIENT
  Sex: Male

DRUGS (1)
  1. AVANDIA [Suspect]
     Active Substance: ROSIGLITAZONE MALEATE
     Indication: DIABETES MELLITUS
     Dosage: 8MG PER DAY
     Route: 048
     Dates: start: 19990615, end: 20070717

REACTIONS (5)
  - Anaemia [Unknown]
  - Ventricular fibrillation [Unknown]
  - Acute myocardial infarction [Not Recovered/Not Resolved]
  - Stent placement [Unknown]
  - Coronary artery disease [Unknown]
